FAERS Safety Report 9539798 (Version 6)
Quarter: 2013Q4

REPORT INFORMATION
  Report Type: Report from Study
  Country: DE (occurrence: DE)
  Receive Date: 20130920
  Receipt Date: 20131226
  Transmission Date: 20140711
  Serious: Yes (Hospitalization)
  Sender: FDA-Public Use
  Company Number: DE-PFIZER INC-2013266676

PATIENT
  Age: 65 Year
  Sex: Female
  Weight: 76 kg

DRUGS (14)
  1. SUNITINIB MALATE [Suspect]
     Indication: METASTATIC RENAL CELL CARCINOMA
     Dosage: 50 MG, 1X/DAY
     Dates: start: 20130806
  2. MICARDIS [Concomitant]
     Dosage: 80 MG, UNK
     Route: 048
  3. MICARDIS [Concomitant]
     Dosage: 25 MG, UNK
     Route: 048
  4. BELOC-ZOK MITE [Concomitant]
     Indication: HYPERTONIA
     Dosage: 47.5 MG, UNK
     Route: 048
  5. EUTHYROX [Concomitant]
     Dosage: 75 UG, UNK
     Route: 048
  6. MIRTAZAPINE [Concomitant]
     Dosage: 15 MG, UNK
  7. MCP [Concomitant]
     Dosage: UNK
  8. SALBUTAMOL [Concomitant]
     Dosage: UNK
  9. PANTOPRAZOL [Concomitant]
     Dosage: 40 MG, UNK
  10. PARACETAMOL [Concomitant]
     Dosage: UNK
  11. LORAZEPAM [Concomitant]
     Dosage: UNK
  12. L-THYROXIN [Concomitant]
     Dosage: 75 UG, UNK
  13. BISOPROLOL [Concomitant]
     Dosage: UNK
  14. LEVETIRACETAM [Concomitant]
     Dosage: UNK

REACTIONS (6)
  - Dehydration [Recovered/Resolved]
  - Thrombocytopenia [Recovered/Resolved]
  - General physical health deterioration [Recovered/Resolved]
  - Mucosal inflammation [Recovered/Resolved]
  - Back pain [Not Recovered/Not Resolved]
  - Leukopenia [Recovered/Resolved]
